FAERS Safety Report 7274837-8 (Version None)
Quarter: 2011Q1

REPORT INFORMATION
  Report Type: 
  Country: None (occurrence: None)
  Receive Date: 20110204
  Receipt Date: 20110125
  Transmission Date: 20110831
  Serious: Yes (Other)
  Sender: FDA-Public Use
  Company Number: GB-TEVA-264989ISR

PATIENT
  Age: 30 Year
  Sex: Female

DRUGS (2)
  1. CODEINE SULFATE [Suspect]
  2. ACETAMINOPHEN [Suspect]

REACTIONS (2)
  - METABOLIC ACIDOSIS [None]
  - OVERDOSE [None]
